FAERS Safety Report 12266281 (Version 1)
Quarter: 2016Q2

REPORT INFORMATION
  Report Type: Spontaneous
  Country: US (occurrence: None)
  Receive Date: 20160413
  Receipt Date: 20160413
  Transmission Date: 20160815
  Serious: No
  Sender: FDA-Public Use
  Company Number: None

PATIENT
  Age: 54 Year
  Sex: Female

DRUGS (8)
  1. CYCLOBENZAPR [Concomitant]
  2. LUPRON [Concomitant]
     Active Substance: LEUPROLIDE ACETATE
  3. IBRANCE [Suspect]
     Active Substance: PALBOCICLIB
     Indication: BREAST CANCER
     Dosage: 1 CAP DAILY PO
     Route: 048
     Dates: start: 201602
  4. HYDROCO/APAP [Concomitant]
     Active Substance: ACETAMINOPHEN\HYDROCODONE
  5. DEXAMETH [Concomitant]
     Active Substance: DEXAMETHASONE
  6. LETROZOLE. [Concomitant]
     Active Substance: LETROZOLE
  7. XGEVA [Concomitant]
     Active Substance: DENOSUMAB
  8. CALCIUM [Concomitant]
     Active Substance: CALCIUM

REACTIONS (1)
  - Fatigue [None]

NARRATIVE: CASE EVENT DATE: 201602
